FAERS Safety Report 20832207 (Version 1)
Quarter: 2022Q2

REPORT INFORMATION
  Report Type: 
  Country: None (occurrence: None)
  Receive Date: 20220516
  Receipt Date: 20220516
  Transmission Date: 20220721
  Serious: No
  Sender: FDA-Public Use
  Company Number: CN-ROCHE-3094449

PATIENT

DRUGS (12)
  1. MABTHERA [Suspect]
     Active Substance: RITUXIMAB
     Dosage: R-CHOP
     Dates: start: 20170426
  2. CYCLOPHOSPHAMIDE [Concomitant]
     Active Substance: CYCLOPHOSPHAMIDE
     Dosage: R-CHOP
     Dates: start: 20170426
  3. CYCLOPHOSPHAMIDE [Concomitant]
     Active Substance: CYCLOPHOSPHAMIDE
     Dosage: CHOP
     Dates: start: 20170603
  4. CYCLOPHOSPHAMIDE [Concomitant]
     Active Substance: CYCLOPHOSPHAMIDE
     Dosage: CVP
     Dates: start: 20170926
  5. DOXORUBICIN [Concomitant]
     Active Substance: DOXORUBICIN
     Dosage: R-CHOP
     Dates: start: 20170426
  6. DOXORUBICIN [Concomitant]
     Active Substance: DOXORUBICIN
     Dosage: CHOP
     Dates: start: 20170603
  7. VINCRISTINE [Concomitant]
     Active Substance: VINCRISTINE
     Dosage: R-CHOP
     Dates: start: 20170426
  8. VINCRISTINE [Concomitant]
     Active Substance: VINCRISTINE
     Dosage: CHOP
     Dates: start: 20170603
  9. VINCRISTINE [Concomitant]
     Active Substance: VINCRISTINE
     Dosage: CVP
     Dates: start: 20170926
  10. PREDNISONE [Concomitant]
     Active Substance: PREDNISONE
     Dosage: R-CHOP
     Dates: start: 20170426
  11. PREDNISONE [Concomitant]
     Active Substance: PREDNISONE
     Dosage: CHOP
     Dates: start: 20170603
  12. PREDNISONE [Concomitant]
     Active Substance: PREDNISONE
     Dosage: CVP
     Dates: start: 20170926

REACTIONS (1)
  - Gastric cancer [None]
